FAERS Safety Report 6982770-1 (Version None)
Quarter: 2010Q3

REPORT INFORMATION
  Report Type: 
  Country: None (occurrence: None)
  Receive Date: 20100914
  Receipt Date: 20100326
  Transmission Date: 20110219
  Serious: No
  Sender: FDA-Public Use
  Company Number: US-PFIZER INC-2010040652

PATIENT
  Sex: Female

DRUGS (2)
  1. LYRICA [Suspect]
  2. VALIUM [Concomitant]

REACTIONS (2)
  - DIZZINESS [None]
  - INCORRECT DOSE ADMINISTERED [None]
